FAERS Safety Report 4697786-8 (Version None)
Quarter: 2005Q2

REPORT INFORMATION
  Report Type: 
  Country: None (occurrence: None)
  Receive Date: 20050621
  Receipt Date: 20050613
  Transmission Date: 20051028
  Serious: No
  Sender: FDA-Public Use
  Company Number: 230129M05USA

PATIENT
  Age: 30 Year
  Sex: Female

DRUGS (2)
  1. REBIF [Suspect]
     Indication: MULTIPLE SCLEROSIS
     Dosage: 44 MCG, 3 IN 1 WEEKS, SUBCUTANEOUS
     Route: 058
     Dates: start: 20040901, end: 20050401
  2. EFFEXOR [Concomitant]

REACTIONS (4)
  - FATIGUE [None]
  - HYPERTHYROIDISM [None]
  - SOMNOLENCE [None]
  - THYROIDITIS [None]
